FAERS Safety Report 10450970 (Version 2)
Quarter: 2016Q1

REPORT INFORMATION
  Report Type: Report from Study
  Country: JP (occurrence: JP)
  Receive Date: 20140912
  Receipt Date: 20160108
  Transmission Date: 20160525
  Serious: Yes (Death)
  Sender: FDA-Public Use
  Company Number: JP-PFIZER INC-2014250467

PATIENT
  Age: 48 Year
  Sex: Male
  Weight: 101.9 kg

DRUGS (16)
  1. TAKEPRON [Concomitant]
     Active Substance: LANSOPRAZOLE
     Dosage: 30 MG, 1X/DAY
     Dates: start: 20140819, end: 20140821
  2. XALKORI [Suspect]
     Active Substance: CRIZOTINIB
     Indication: NON-SMALL CELL LUNG CANCER
     Dosage: 250 MG, 2X/DAY (500 MG DAILY)
     Route: 048
     Dates: start: 20140811, end: 20140821
  3. NAIXAN /00256201/ [Concomitant]
     Active Substance: NAPROXEN
     Dosage: 100 MG, 3X/DAY
     Route: 048
     Dates: start: 20140812, end: 20140819
  4. ROCEPHIN [Concomitant]
     Active Substance: CEFTRIAXONE SODIUM
     Dosage: 1 G, 1X/DAY
     Dates: start: 20140810, end: 20140819
  5. MAGMITT [Concomitant]
     Active Substance: MAGNESIUM OXIDE
     Dosage: 500 MG, AS NEEDED
     Route: 048
     Dates: start: 20140811, end: 20140819
  6. BROTIZOLAM [Concomitant]
     Active Substance: BROTIZOLAM
     Dosage: 0.25 MG, AS NEEDED
     Route: 048
     Dates: start: 20140815, end: 20140819
  7. PARIET [Concomitant]
     Active Substance: RABEPRAZOLE SODIUM
     Dosage: 10 MG, 1X/DAY
     Route: 048
     Dates: start: 20140812, end: 20140819
  8. MORPHINE HYDROCHLORIDE [Concomitant]
     Active Substance: MORPHINE HYDROCHLORIDE
     Dosage: UNK
     Dates: start: 20140819, end: 20140825
  9. LINTON /00027401/ [Concomitant]
     Dosage: 5 MG, 1X/DAY
     Dates: start: 20140822, end: 20140825
  10. NOVAMIN /00013304/ [Concomitant]
     Active Substance: PROCHLORPERAZINE MALEATE
     Dosage: 5 MG, 3X/DAY
     Route: 048
     Dates: start: 20140811, end: 20140819
  11. MS CONTIN [Concomitant]
     Active Substance: MORPHINE SULFATE
     Dosage: 10 MG, 2X/DAY
     Route: 048
     Dates: start: 20140811, end: 20140819
  12. OPSO [Concomitant]
     Active Substance: MORPHINE HYDROCHLORIDE
     Dosage: 5 MG, AS NEEDED
     Route: 048
     Dates: start: 20140811, end: 20140819
  13. HEPARIN SODIUM. [Concomitant]
     Active Substance: HEPARIN SODIUM
     Dosage: 100 IU, 1X/DAY
     Dates: start: 20140810, end: 20140821
  14. ADONA /00056903/ [Concomitant]
     Active Substance: CARBAZOCHROME SODIUM SULFONATE
     Dosage: 50 MG, 1X/DAY
     Dates: start: 20140819, end: 20140821
  15. LASIX [Concomitant]
     Active Substance: FUROSEMIDE
     Dosage: 10 MG, 1X/DAY
     Dates: start: 20140819, end: 20140821
  16. TRANSAMIN [Concomitant]
     Active Substance: TRANEXAMIC ACID
     Dosage: 250 MG, UNK
     Dates: start: 20140819, end: 20140821

REACTIONS (2)
  - Disease progression [Fatal]
  - Non-small cell lung cancer [Fatal]
